FAERS Safety Report 16180347 (Version 1)
Quarter: 2019Q2

REPORT INFORMATION
  Report Type: Spontaneous
  Country: US (occurrence: US)
  Receive Date: 20190410
  Receipt Date: 20190410
  Transmission Date: 20190711
  Serious: No
  Sender: FDA-Public Use
  Company Number: US-SA-2018SA164112

PATIENT
  Sex: Female

DRUGS (8)
  1. GABAPENTIN. [Concomitant]
     Active Substance: GABAPENTIN
  2. CALCIUM + VITAMIN D3 [Concomitant]
     Active Substance: CALCIUM\CHOLECALCIFEROL
  3. AUBAGIO [Suspect]
     Active Substance: TERIFLUNOMIDE
     Indication: MULTIPLE SCLEROSIS
     Dosage: 14 MG, QD
     Route: 048
     Dates: start: 20180105
  4. VICODIN [Concomitant]
     Active Substance: ACETAMINOPHEN\HYDROCODONE BITARTRATE
  5. BACLOFEN. [Concomitant]
     Active Substance: BACLOFEN
  6. VITAMIN C [Concomitant]
     Active Substance: ASCORBIC ACID
  7. VERAPAMIL [Concomitant]
     Active Substance: VERAPAMIL HYDROCHLORIDE
  8. MELATONIN [Concomitant]
     Active Substance: MELATONIN

REACTIONS (2)
  - Dysphagia [Unknown]
  - Fatigue [Unknown]
